FAERS Safety Report 9065330 (Version 1)
Quarter: 2013Q1

REPORT INFORMATION
  Report Type: Report from Study
  Country: JP (occurrence: JP)
  Receive Date: 20130214
  Receipt Date: 20130214
  Transmission Date: 20140127
  Serious: Yes (Life-Threatening)
  Sender: FDA-Public Use
  Company Number: JP-009507513-1302JPN006102

PATIENT
  Age: 48 Year
  Sex: Male
  Weight: 55 kg

DRUGS (18)
  1. PEGINTRON [Suspect]
     Indication: CHRONIC HEPATITIS C
     Dosage: 1.5 MICROGRAM PER KILOGRAM, QW
     Route: 058
     Dates: start: 20120817, end: 20130125
  2. REBETOL [Suspect]
     Indication: CHRONIC HEPATITIS C
     Dosage: 600 MG, QD
     Route: 048
     Dates: start: 20120817, end: 20121025
  3. REBETOL [Suspect]
     Dosage: 400 MG, QD
     Route: 048
     Dates: start: 20121026, end: 20121108
  4. REBETOL [Suspect]
     Dosage: 600 MG, QD
     Route: 048
     Dates: start: 20121109, end: 20130128
  5. TELAVIC [Suspect]
     Indication: CHRONIC HEPATITIS C
     Dosage: 1500 MG, QD
     Route: 048
     Dates: start: 20120817, end: 20121109
  6. URSO [Concomitant]
     Indication: CHRONIC HEPATITIS C
     Dosage: 600 MG, QD, FORMULATION:POR
     Route: 048
  7. IRRIBOW [Concomitant]
     Indication: IRRITABLE BOWEL SYNDROME
     Dosage: 5 MICROGRAM, QD, FORMULATION:POR
     Route: 048
  8. BIOFERMIN (BACILLUS SUBTILIS (+) LACTOBACILLUS ACIDOPHILUS (+) STREPTO [Concomitant]
     Indication: IRRITABLE BOWEL SYNDROME
     Dosage: 36 MG, QD, FORMULATION:POR
     Route: 048
  9. SOLANAX [Concomitant]
     Indication: IRRITABLE BOWEL SYNDROME
     Dosage: 1.2 MG, QD, FORMULATION:POR
     Route: 048
  10. GASTER D [Concomitant]
     Indication: GASTRIC ULCER
     Dosage: 20 MG, QD, FORMULATION:POR
     Route: 048
  11. VOLTAREN [Concomitant]
     Indication: PROPHYLAXIS
     Dosage: FORMULATION:SUP, PRN
     Route: 054
     Dates: start: 20120817, end: 20120817
  12. LOXONIN [Concomitant]
     Indication: PROPHYLAXIS
     Dosage: 180 MG, QD, FORMULATION:POR
     Route: 048
     Dates: start: 20120817, end: 20120823
  13. MUCOSTA [Concomitant]
     Indication: PROPHYLAXIS
     Dosage: 300 MG, QD, FORMULATION:POR
     Route: 048
     Dates: start: 20120817
  14. SHAKUYAKU-KANZO-TO [Concomitant]
     Indication: MUSCLE SPASMS
     Dosage: 7.5 G, QD
     Route: 048
     Dates: start: 20120818
  15. CONFATANIN [Concomitant]
     Indication: PROPHYLAXIS
     Dosage: 180 MG, Q, FORMULATION:POR
     Route: 048
     Dates: start: 20120824
  16. LOPEMIN [Concomitant]
     Indication: IRRITABLE BOWEL SYNDROME
     Dosage: 1 G/DAY , PRN, FORMULATION:POR
     Route: 048
     Dates: start: 20120831
  17. FAMOSTAGINE D [Concomitant]
     Indication: GASTRIC ULCER
     Dosage: 20 MG, QD, FORMULATION:POR
     Route: 048
     Dates: start: 20120831
  18. TAURINE [Concomitant]
     Indication: MUSCLE SPASMS
     Dosage: 3 G, QD, FORMULATION:POW
     Route: 048
     Dates: start: 20120914

REACTIONS (2)
  - Extradural haematoma [Not Recovered/Not Resolved]
  - Skull fractured base [Not Recovered/Not Resolved]
